FAERS Safety Report 5217547-0 (Version None)
Quarter: 2007Q1

REPORT INFORMATION
  Report Type: 
  Country: None (occurrence: None)
  Receive Date: 20070124
  Receipt Date: 20060316
  Transmission Date: 20070707
  Serious: No
  Sender: FDA-Public Use
  Company Number: US-GLAXOSMITHKLINE-A0597882A

PATIENT
  Age: 49 Year
  Sex: Female

DRUGS (2)
  1. PAXIL CR [Suspect]
     Route: 048
     Dates: start: 20030101, end: 20030101
  2. SYNTHROID [Concomitant]

REACTIONS (1)
  - HEART RATE INCREASED [None]
